FAERS Safety Report 16315194 (Version 1)
Quarter: 2019Q2

REPORT INFORMATION
  Report Type: Spontaneous
  Country: US (occurrence: US)
  Receive Date: 20190515
  Receipt Date: 20190515
  Transmission Date: 20190711
  Serious: No
  Sender: FDA-Public Use
  Company Number: US-009507513-1905USA001845

PATIENT
  Sex: Female

DRUGS (2)
  1. PREGNYL [Suspect]
     Active Substance: CHORIOGONADOTROPIN ALFA
     Indication: INFERTILITY
     Dosage: STRENGHT: 10.000 USP UNITS, FOR ONE TIME USE
     Route: 058
     Dates: start: 201904
  2. LETROZOLE. [Concomitant]
     Active Substance: LETROZOLE
     Route: 048

REACTIONS (6)
  - Musculoskeletal pain [Unknown]
  - Abdominal pain lower [Unknown]
  - Injection site pain [Unknown]
  - Cyst [Unknown]
  - Injection site reaction [Unknown]
  - Ovulation pain [Unknown]

NARRATIVE: CASE EVENT DATE: 2019
